FAERS Safety Report 8926283 (Version 1)
Quarter: 2012Q4

REPORT INFORMATION
  Report Type: 
  Country: GB (occurrence: GB)
  Receive Date: 20121126
  Receipt Date: 20121126
  Transmission Date: 20130627
  Serious: Yes (Other)
  Sender: FDA-Public Use
  Company Number: GB-ASTELLAS-2012EU010027

PATIENT
  Sex: Male

DRUGS (1)
  1. VESICARE [Suspect]
     Dosage: UNK
     Route: 065

REACTIONS (5)
  - Drug ineffective [Unknown]
  - Confusional state [Unknown]
  - Dysarthria [Unknown]
  - Hallucination [Unknown]
  - Malaise [Unknown]
